FAERS Safety Report 8704743 (Version 6)
Quarter: 2013Q3

REPORT INFORMATION
  Report Type: Spontaneous
  Country: US (occurrence: US)
  Receive Date: 20120803
  Receipt Date: 20130905
  Transmission Date: 20140515
  Serious: Yes (Hospitalization, Other)
  Sender: FDA-Public Use
  Company Number: US-009507513-1207USA009308

PATIENT
  Sex: Female

DRUGS (7)
  1. FOSAMAX [Suspect]
     Indication: OSTEOPOROSIS
     Dosage: 70 MG, QW
     Route: 048
     Dates: start: 2000
  2. ALENDRONATE SODIUM [Suspect]
     Indication: OSTEOPOROSIS
     Dosage: 70 MG, UNK
     Route: 048
     Dates: start: 20080314
  3. ACTOS [Concomitant]
     Indication: DIABETES MELLITUS
     Dosage: UNK
  4. HUMALOG [Concomitant]
     Indication: DIABETES MELLITUS
     Dosage: UNK
  5. METOPROLOL [Concomitant]
     Indication: HYPERTENSION
     Dosage: UNK
     Dates: start: 1990
  6. LOTREL [Concomitant]
     Indication: HYPERTENSION
     Dosage: UNK
     Dates: start: 1990
  7. INSULIN [Concomitant]
     Indication: DIABETES MELLITUS

REACTIONS (40)
  - Femur fracture [Unknown]
  - Intramedullary rod insertion [Unknown]
  - Femur fracture [Recovering/Resolving]
  - Intramedullary rod insertion [Unknown]
  - Internal fixation of fracture [Unknown]
  - Hypertension [Unknown]
  - Nephritis [Unknown]
  - Skin ulcer [Unknown]
  - Anaemia [Unknown]
  - Rhabdomyolysis [Unknown]
  - Anaemia [Unknown]
  - Cardiac failure acute [Unknown]
  - Gastrointestinal haemorrhage [Unknown]
  - Bacterial infection [Unknown]
  - Pyelonephritis acute [Unknown]
  - Mental status changes [Recovered/Resolved]
  - Dehydration [Unknown]
  - Hypokalaemia [Unknown]
  - Hypomagnesaemia [Unknown]
  - Pyelonephritis acute [Unknown]
  - Hypothyroidism [Unknown]
  - Hypercholesterolaemia [Unknown]
  - Joint injury [Unknown]
  - Spinal osteoarthritis [Unknown]
  - Osteoarthritis [Unknown]
  - Arthritis [Unknown]
  - Asthma [Unknown]
  - Cardiac murmur [Unknown]
  - White blood cells urine positive [Unknown]
  - Bacterial test [Unknown]
  - Peripheral vascular disorder [Unknown]
  - Mitral valve incompetence [Unknown]
  - Aortic stenosis [Unknown]
  - Pain [Not Recovered/Not Resolved]
  - Limb operation [Unknown]
  - Cataract operation [Unknown]
  - Hysterectomy [Unknown]
  - Malaise [Unknown]
  - Malaise [Unknown]
  - Diarrhoea [Unknown]
